FAERS Safety Report 5274036-5 (Version None)
Quarter: 2007Q1

REPORT INFORMATION
  Report Type: 
  Country: None (occurrence: None)
  Receive Date: 20070323
  Receipt Date: 20070316
  Transmission Date: 20070707
  Serious: Yes (Death, Hospitalization, Other)
  Sender: FDA-Public Use
  Company Number: US-ELI_LILLY_AND_COMPANY-US200701002859

PATIENT
  Age: 71 Year
  Sex: Male

DRUGS (17)
  1. ALIMTA [Suspect]
     Indication: NON-SMALL CELL LUNG CANCER
     Dosage: 750 MG, UNK
     Route: 042
     Dates: start: 20061222
  2. GEMZAR [Suspect]
     Dosage: 1900 MG, UNK
     Route: 042
     Dates: start: 20060816, end: 20061201
  3. GEMZAR [Suspect]
     Dosage: 1450 MG, UNK
     Route: 042
     Dates: start: 20061117, end: 20061117
  4. CARBOPLATIN [Concomitant]
     Indication: ADENOCARCINOMA
     Dosage: 610 MG, UNK
     Route: 042
     Dates: start: 20060816
  5. CARBOPLATIN [Concomitant]
     Dosage: 550 MG, UNK
     Route: 042
     Dates: start: 20060929
  6. CARBOPLATIN [Concomitant]
     Dosage: 130 MG, UNK
     Route: 042
     Dates: start: 20061020
  7. CARBOPLATIN [Concomitant]
     Dosage: 630 MG, UNK
     Route: 042
     Dates: start: 20061110
  8. PREVACID [Concomitant]
     Dosage: 30 MG, DAILY (1/D)
  9. WELCHOL [Concomitant]
     Dosage: 625 MG, 3/D
  10. TYLENOL W/ CODEINE NO. 2 [Concomitant]
     Dosage: UNK, EVERY 6 HRS
  11. DECADRON                                /CAN/ [Concomitant]
     Dosage: 12 MG, UNK
     Dates: start: 20060816
  12. ALOXI [Concomitant]
     Dosage: 0.25 MG, UNK
     Route: 042
  13. COMPAZINE [Concomitant]
     Indication: NAUSEA
     Dosage: 10 MG, EVERY 4 HRS
  14. AVELOX [Concomitant]
     Dosage: 400 MG, DAILY (1/D)
     Dates: start: 20060823
  15. NEULASTA [Concomitant]
     Dosage: 6 MG, UNK
     Route: 058
     Dates: start: 20060824
  16. VITAMIN B-12 [Concomitant]
     Indication: VITAMIN SUPPLEMENTATION
     Dosage: 1000 UG, UNK
     Route: 030
     Dates: start: 20061215
  17. FOLIC ACID [Concomitant]
     Indication: VITAMIN SUPPLEMENTATION
     Dosage: 1 MG, DAILY (1/D)
     Dates: start: 20061201

REACTIONS (27)
  - ABDOMINAL PAIN [None]
  - AGEUSIA [None]
  - ALOPECIA [None]
  - ANAEMIA [None]
  - ASTHENIA [None]
  - CAECITIS [None]
  - CARDIO-RESPIRATORY ARREST [None]
  - CARDIOGENIC SHOCK [None]
  - CHOLELITHIASIS [None]
  - COUGH [None]
  - DECREASED APPETITE [None]
  - DEEP VEIN THROMBOSIS [None]
  - DYSPNOEA EXERTIONAL [None]
  - FATIGUE [None]
  - LEUKOPENIA [None]
  - LIMB DISCOMFORT [None]
  - MALIGNANT NEOPLASM PROGRESSION [None]
  - MUSCULOSKELETAL CHEST PAIN [None]
  - NAUSEA [None]
  - NEURALGIA [None]
  - NEUTROPHILIA [None]
  - PANCYTOPENIA [None]
  - PHLEBITIS [None]
  - PULMONARY EMBOLISM [None]
  - RENAL FAILURE ACUTE [None]
  - THROMBOCYTOPENIA [None]
  - WEIGHT DECREASED [None]
